FAERS Safety Report 8453683 (Version 2)
Quarter: 2012Q4

REPORT INFORMATION
  Report Type: 
  Country: BE (occurrence: BE)
  Receive Date: 20120312
  Receipt Date: 20121012
  Transmission Date: 20130627
  Serious: Yes (Hospitalization, Congenital Anomaly, Other)
  Sender: FDA-Public Use
  Company Number: BE-PFIZER INC-2011097510

PATIENT
  Sex: Male
  Weight: 4.67 kg

DRUGS (2)
  1. DIFLUCAN [Suspect]
     Indication: SYSTEMIC CANDIDA
     Dosage: 200 mg, UNK
     Route: 064
     Dates: start: 20110303, end: 20110428
  2. INSULIN [Suspect]

REACTIONS (6)
  - Maternal exposure timing unspecified [Not Recovered/Not Resolved]
  - Noonan syndrome [Not Recovered/Not Resolved]
  - Cryptorchism [Unknown]
  - Clavicle fracture [Unknown]
  - Immature respiratory system [Recovered/Resolved]
  - Macrosomia [Unknown]
